FAERS Safety Report 12246639 (Version 1)
Quarter: 2016Q2

REPORT INFORMATION
  Report Type: Report from Study
  Country: BR (occurrence: BR)
  Receive Date: 20160407
  Receipt Date: 20160407
  Transmission Date: 20160815
  Serious: Yes (Hospitalization, Other)
  Sender: FDA-Public Use
  Company Number: BR-JNJFOC-20160402708

PATIENT
  Age: 28 Year
  Sex: Female

DRUGS (1)
  1. REMICADE [Suspect]
     Active Substance: INFLIXIMAB
     Indication: CROHN^S DISEASE
     Route: 042
     Dates: start: 2014, end: 20150201

REACTIONS (7)
  - Asphyxia [Unknown]
  - Erythema [Unknown]
  - Abscess [Unknown]
  - Dyspnoea [Unknown]
  - Infusion related reaction [Unknown]
  - Intestinal resection [Unknown]
  - Pruritus [Unknown]

NARRATIVE: CASE EVENT DATE: 201409
